FAERS Safety Report 19747225 (Version 2)
Quarter: 2021Q3

REPORT INFORMATION
  Report Type: Spontaneous
  Country: US (occurrence: US)
  Receive Date: 20210826
  Receipt Date: 20210922
  Transmission Date: 20211014
  Serious: Yes (Hospitalization)
  Sender: FDA-Public Use
  Company Number: US-AUROBINDO-AUR-APL-2021-035301

PATIENT
  Age: 59 Year
  Sex: Female
  Weight: 68.04 kg

DRUGS (5)
  1. PFIZER?BIONTECH COVID?19 VACCINE [Suspect]
     Active Substance: TOZINAMERAN
     Indication: COVID-19
     Dosage: UNK(FIRST DOSE)
     Route: 065
     Dates: start: 20210211
  2. SUMATRIPTAN TABLETS 100MG [Suspect]
     Active Substance: SUMATRIPTAN
     Indication: MIGRAINE
     Dosage: UNK
     Route: 065
  3. TOPIRAMATE 25MG [Suspect]
     Active Substance: TOPIRAMATE
     Indication: MIGRAINE
  4. PFIZER?BIONTECH COVID?19 VACCINE [Suspect]
     Active Substance: TOZINAMERAN
     Dosage: UNK(SDECOND DOSE)
     Route: 065
     Dates: start: 20210304
  5. AIMOVIG [Suspect]
     Active Substance: ERENUMAB-AOOE
     Indication: MIGRAINE
     Dosage: UNK(ONCE IN A MONTH)
     Route: 065

REACTIONS (1)
  - Therapeutic product effect incomplete [Unknown]
